FAERS Safety Report 8860447 (Version 1)
Quarter: 2012Q4

REPORT INFORMATION
  Report Type: 
  Country: US (occurrence: US)
  Receive Date: 20121025
  Receipt Date: 20121025
  Transmission Date: 20130627
  Serious: Yes (Hospitalization, Other)
  Sender: FDA-Public Use
  Company Number: US-BAYER-2012-110140

PATIENT
  Age: 32 Year
  Sex: Female

DRUGS (14)
  1. YASMIN [Suspect]
  2. ALTACE [Concomitant]
     Dosage: 5 mg, every day
     Route: 048
  3. ALTEPLASE [Concomitant]
     Dosage: 0.5 mg, daily
  4. PSEUDOEPHEDRINE [Concomitant]
     Indication: SINUS PAIN
     Dosage: 30 mg, UNK
  5. VITAMINS [Concomitant]
  6. PRENATAL VITAMINS [Concomitant]
  7. ADVIL [Concomitant]
  8. VICODIN [Concomitant]
  9. TYLENOL #3 [Concomitant]
  10. GLUCOPHAGE [Concomitant]
     Dosage: 500 mg, BID
  11. ZOMIG [Concomitant]
     Indication: MIGRAINE
     Dosage: 2.5 mg, UNK
  12. NEXIUM [Concomitant]
     Dosage: 40 mg, QD for 2 weeks
  13. TUMS [CALCIUM CARBONATE] [Concomitant]
  14. PRILOSEC [Concomitant]

REACTIONS (2)
  - Pulmonary embolism [None]
  - Cholecystitis chronic [None]
